FAERS Safety Report 18379409 (Version 1)
Quarter: 2020Q4

REPORT INFORMATION
  Report Type: Spontaneous
  Country: US (occurrence: US)
  Receive Date: 20201013
  Receipt Date: 20201013
  Transmission Date: 20210114
  Serious: Yes (Other)
  Sender: FDA-Public Use
  Company Number: US-ASTRAZENECA-2020SF30836

PATIENT
  Sex: Male
  Weight: 116.1 kg

DRUGS (10)
  1. METFORMIN [Suspect]
     Active Substance: METFORMIN HYDROCHLORIDE
     Route: 048
  2. DULOXETINE. [Concomitant]
     Active Substance: DULOXETINE
  3. D3 AND CALCIUM [Concomitant]
  4. GLEMEPRIDE [Concomitant]
  5. LUPRON DEPOT [Concomitant]
     Active Substance: LEUPROLIDE ACETATE
  6. LYNPARZA [Suspect]
     Active Substance: OLAPARIB
     Indication: NEOPLASM MALIGNANT
     Route: 048
     Dates: start: 202006
  7. LISINOPRIL. [Concomitant]
     Active Substance: LISINOPRIL
  8. VITAMIN B12 [Concomitant]
     Active Substance: CYANOCOBALAMIN
  9. LANTUS [Concomitant]
     Active Substance: INSULIN GLARGINE
  10. FLONASE [Concomitant]
     Active Substance: FLUTICASONE PROPIONATE

REACTIONS (6)
  - Diarrhoea [Unknown]
  - Drug ineffective [Unknown]
  - Malignant neoplasm progression [Unknown]
  - Dehydration [Unknown]
  - Renal impairment [Unknown]
  - Retching [Unknown]
